FAERS Safety Report 24332351 (Version 1)
Quarter: 2024Q3

REPORT INFORMATION
  Report Type: Spontaneous
  Country: US (occurrence: None)
  Receive Date: 20240916
  Receipt Date: 20240916
  Transmission Date: 20241017
  Serious: No
  Sender: Public
  Company Number: None

PATIENT
  Age: 28 Year
  Sex: Female
  Weight: 81.65 kg

DRUGS (3)
  1. NEXPLANON [Suspect]
     Active Substance: ETONOGESTREL
  2. ALBUTEROL [Concomitant]
     Active Substance: ALBUTEROL
  3. VITAMINS [Concomitant]
     Active Substance: VITAMINS

REACTIONS (3)
  - Contraceptive implant [None]
  - Amenorrhoea [None]
  - Intermenstrual bleeding [None]

NARRATIVE: CASE EVENT DATE: 20240219
